FAERS Safety Report 4966674-1 (Version None)
Quarter: 2006Q1

REPORT INFORMATION
  Report Type: 
  Country: None (occurrence: None)
  Receive Date: 20060201
  Receipt Date: 20051130
  Transmission Date: 20060701
  Serious: No
  Sender: FDA-Public Use
  Company Number: 2005PV005119

PATIENT
  Age: 72 Year
  Sex: Female
  Weight: 99.7913 kg

DRUGS (8)
  1. BYETTA [Suspect]
     Indication: DIABETES MELLITUS NON-INSULIN-DEPENDENT
     Dosage: 10 MCG; BID; SC;  5 MCG; BID; SC
     Route: 058
     Dates: start: 20051029, end: 20051104
  2. BYETTA [Suspect]
     Indication: DIABETES MELLITUS NON-INSULIN-DEPENDENT
     Dosage: 10 MCG; BID; SC;  5 MCG; BID; SC
     Route: 058
     Dates: start: 20051105
  3. LANTUS [Concomitant]
  4. ACTOS [Concomitant]
  5. AMARYL [Concomitant]
  6. LEXAPRO [Concomitant]
  7. TOPROL-XL [Concomitant]
  8. KLOR-CON [Concomitant]

REACTIONS (5)
  - BLOOD GLUCOSE INCREASED [None]
  - NASOPHARYNGITIS [None]
  - NAUSEA [None]
  - TREMOR [None]
  - WEIGHT DECREASED [None]
